FAERS Safety Report 5574975-1 (Version None)
Quarter: 2007Q4

REPORT INFORMATION
  Report Type: 
  Country: None (occurrence: None)
  Receive Date: 20071227
  Receipt Date: 20071219
  Transmission Date: 20080405
  Serious: Yes (Hospitalization)
  Sender: FDA-Public Use
  Company Number: B0500631A

PATIENT
  Age: 52 Year
  Sex: Female

DRUGS (1)
  1. FLUTICASONE PROPIONATE + SALMETEROL XINAFOATE [Suspect]
     Indication: ASTHMA
     Route: 055

REACTIONS (3)
  - DIARRHOEA [None]
  - SALMONELLOSIS [None]
  - VOMITING [None]
